FAERS Safety Report 5303134-2 (Version None)
Quarter: 2007Q2

REPORT INFORMATION
  Report Type: 
  Country: None (occurrence: None)
  Receive Date: 20070420
  Receipt Date: 20070409
  Transmission Date: 20071010
  Serious: Yes (Hospitalization)
  Sender: FDA-Public Use
  Company Number: PHEH2007US04712

PATIENT
  Age: 63 Year
  Sex: Female

DRUGS (2)
  1. ZELNORM [Suspect]
     Indication: IRRITABLE BOWEL SYNDROME
     Dosage: 6 MG, QID
     Route: 048
     Dates: start: 20050101
  2. ARIMIDEX [Concomitant]

REACTIONS (3)
  - ABDOMINAL PAIN [None]
  - LAPAROSCOPY ABNORMAL [None]
  - POSTOPERATIVE ADHESION [None]
